FAERS Safety Report 5681318-1 (Version None)
Quarter: 2008Q1

REPORT INFORMATION
  Report Type: 
  Country: None (occurrence: None)
  Receive Date: 20080326
  Receipt Date: 20070118
  Transmission Date: 20080703
  Serious: No
  Sender: FDA-Public Use
  Company Number: US-BAYER-US-2007-001966

PATIENT
  Age: 32 Year
  Sex: Female
  Weight: 143 kg

DRUGS (2)
  1. MIRENA [Suspect]
     Indication: MENORRHAGIA
     Route: 015
     Dates: start: 20070108, end: 20070118
  2. ADVIL [Concomitant]

REACTIONS (6)
  - ABDOMINAL PAIN [None]
  - DIZZINESS [None]
  - IUCD COMPLICATION [None]
  - PAIN [None]
  - PYREXIA [None]
  - VAGINAL HAEMORRHAGE [None]
